FAERS Safety Report 5573756-2 (Version None)
Quarter: 2007Q4

REPORT INFORMATION
  Report Type: 
  Country: None (occurrence: None)
  Receive Date: 20071226
  Receipt Date: 20071212
  Transmission Date: 20080405
  Serious: Yes (Other)
  Sender: FDA-Public Use
  Company Number: CA-ELI_LILLY_AND_COMPANY-CA200712003037

PATIENT
  Age: 54 Year
  Sex: Female

DRUGS (12)
  1. FORTEO [Suspect]
     Indication: OSTEOPOROSIS
     Dosage: 20 UG, DAILY (1/D)
     Route: 058
     Dates: start: 20070206
  2. HYDROMORPHONE HCL [Concomitant]
  3. LYRICA [Concomitant]
  4. CALCIUM [Concomitant]
  5. VITAMIN D [Concomitant]
  6. NEXIUM [Concomitant]
  7. MULTIVITAMINS, COMBINATIONS [Concomitant]
  8. FOLIC ACID [Concomitant]
  9. VITAMIN E [Concomitant]
  10. RIVOTRIL [Concomitant]
  11. COLACE [Concomitant]
  12. MIACALCIN [Concomitant]

REACTIONS (1)
  - SUICIDAL IDEATION [None]
